FAERS Safety Report 4980495-5 (Version None)
Quarter: 2006Q2

REPORT INFORMATION
  Report Type: 
  Country: None (occurrence: None)
  Receive Date: 20060424
  Receipt Date: 20060413
  Transmission Date: 20061013
  Serious: Yes (Death)
  Sender: FDA-Public Use
  Company Number: DE-JNJFOC-20060204743

PATIENT
  Age: 23 Year
  Sex: Female
  Weight: 52 kg

DRUGS (6)
  1. REMICADE [Suspect]
     Route: 042
  2. REMICADE [Suspect]
     Route: 042
  3. REMICADE [Suspect]
     Indication: CROHN'S DISEASE
     Route: 042
  4. AZATHIOPRINE [Concomitant]
     Indication: CROHN'S DISEASE
  5. DECORTIN [Concomitant]
     Indication: CROHN'S DISEASE
  6. FOSAMAX [Concomitant]
     Indication: OSTEOPOROSIS

REACTIONS (31)
  - ABDOMINAL ADHESIONS [None]
  - ABDOMINAL PAIN [None]
  - ABSCESS [None]
  - ANAL FISTULA [None]
  - BRONCHOPNEUMONIA [None]
  - C-REACTIVE PROTEIN INCREASED [None]
  - CARDIOMYOPATHY [None]
  - CARDIOPULMONARY FAILURE [None]
  - CIRCULATORY COLLAPSE [None]
  - COAGULOPATHY [None]
  - CONSTIPATION [None]
  - ENTEROCOCCAL INFECTION [None]
  - GASTROINTESTINAL DISORDER [None]
  - GASTROINTESTINAL NECROSIS [None]
  - HYPOTENSION [None]
  - INTESTINAL PERFORATION [None]
  - LEUKOCYTOSIS [None]
  - LEUKOPENIA [None]
  - METABOLIC ACIDOSIS [None]
  - MULTI-ORGAN FAILURE [None]
  - PERITONITIS [None]
  - PLEURAL EFFUSION [None]
  - PNEUMONIA [None]
  - PYREXIA [None]
  - RENAL DISORDER [None]
  - RENAL FAILURE [None]
  - RENAL FAILURE ACUTE [None]
  - SEPSIS [None]
  - SPLEEN DISORDER [None]
  - TACHYCARDIA [None]
  - WOUND INFECTION [None]
